FAERS Safety Report 14362463 (Version 1)
Quarter: 2018Q1

REPORT INFORMATION
  Report Type: Report from Study
  Country: EG (occurrence: EG)
  Receive Date: 20180108
  Receipt Date: 20180108
  Transmission Date: 20180509
  Serious: Yes (Other)
  Sender: FDA-Public Use
  Company Number: EG-ROCHE-2008051

PATIENT

DRUGS (2)
  1. RIBAVIRIN. [Suspect]
     Active Substance: RIBAVIRIN
     Indication: CHRONIC HEPATITIS C
     Dosage: 1200 MG DAILY (400 MG THREE TIMES DAILY) FOR 6 MONTHS IF BODY WEIGHT }/= 75 KILOGRAMS OR 1000 MG DAI
     Route: 065
  2. SOFOSBUVIR [Suspect]
     Active Substance: SOFOSBUVIR
     Indication: CHRONIC HEPATITIS C
     Route: 065

REACTIONS (21)
  - Fatigue [Unknown]
  - Treatment failure [Unknown]
  - Hepatic encephalopathy [Unknown]
  - Pruritus [Unknown]
  - Rash [Unknown]
  - Irritability [Unknown]
  - Influenza like illness [Unknown]
  - Neutropenia [Unknown]
  - Headache [Unknown]
  - Decreased appetite [Unknown]
  - Insomnia [Unknown]
  - Asthenia [Unknown]
  - Coagulopathy [Unknown]
  - Ascites [Unknown]
  - Vomiting [Unknown]
  - Myalgia [Unknown]
  - Pyrexia [Unknown]
  - Anaemia [Unknown]
  - Thrombocytopenia [Unknown]
  - Diarrhoea [Unknown]
  - Nausea [Unknown]
